FAERS Safety Report 8434344-3 (Version None)
Quarter: 2012Q2

REPORT INFORMATION
  Report Type: 
  Country: None (occurrence: None)
  Receive Date: 20120613
  Receipt Date: 20120607
  Transmission Date: 20120825
  Serious: Yes (Other)
  Sender: FDA-Public Use
  Company Number: US-MERCK-1206USA01568

PATIENT

DRUGS (1)
  1. FOSAMAX [Suspect]
     Route: 048

REACTIONS (2)
  - THROMBOTIC THROMBOCYTOPENIC PURPURA [None]
  - HAEMOLYTIC URAEMIC SYNDROME [None]
